FAERS Safety Report 10971774 (Version 1)
Quarter: 2015Q1

REPORT INFORMATION
  Report Type: Spontaneous
  Country: US (occurrence: US)
  Receive Date: 20150331
  Receipt Date: 20150331
  Transmission Date: 20150721
  Serious: Yes (Death, Other)
  Sender: FDA-Public Use
  Company Number: US-BAUSCH-BL-2015-010557

PATIENT
  Age: 54 Year
  Sex: Male

DRUGS (1)
  1. XENAZINE [Suspect]
     Active Substance: TETRABENAZINE
     Indication: HUNTINGTON^S DISEASE
     Dosage: 18.5 MG AM AND 6.25 MG PM
     Route: 048
     Dates: start: 20130320, end: 20150226

REACTIONS (2)
  - Death [Fatal]
  - Drug administration error [Unknown]

NARRATIVE: CASE EVENT DATE: 20130320
